FAERS Safety Report 7010424-4 (Version None)
Quarter: 2010Q3

REPORT INFORMATION
  Report Type: 
  Country: None (occurrence: None)
  Receive Date: 20100923
  Receipt Date: 20100913
  Transmission Date: 20110219
  Serious: Yes (Hospitalization)
  Sender: FDA-Public Use
  Company Number: US-PERRIGO-10US013120

PATIENT
  Sex: Male

DRUGS (4)
  1. NAPROXEN SODIUM-PSEUDOEPHEDRINE HYDROCHLORIDE ER 253 [Suspect]
     Indication: NASOPHARYNGITIS
     Dosage: 1 TABLET, QD FOR 2 DAYS
     Route: 048
  2. NAPROXEN SODIUM-PSEUDOEPHEDRINE HYDROCHLORIDE ER 253 [Suspect]
     Dosage: 1/2 TABLET, SINGLE
     Route: 048
     Dates: start: 20100910, end: 20100910
  3. NEXIUM [Concomitant]
     Indication: PRODUCT USED FOR UNKNOWN INDICATION
     Route: 048
  4. FINASTERIDE [Concomitant]
     Indication: PRODUCT USED FOR UNKNOWN INDICATION
     Dosage: UNK
     Route: 048

REACTIONS (2)
  - CONVULSION [None]
  - FALL [None]
